FAERS Safety Report 13045820 (Version 1)
Quarter: 2016Q4

REPORT INFORMATION
  Report Type: Spontaneous
  Country: CA (occurrence: CA)
  Receive Date: 20161220
  Receipt Date: 20161220
  Transmission Date: 20170207
  Serious: Yes (Other)
  Sender: FDA-Public Use
  Company Number: CA-LPDUSPRD-20160977

PATIENT
  Age: 27 Year
  Sex: Female
  Weight: 69 kg

DRUGS (1)
  1. VENOFER [Suspect]
     Active Substance: IRON SUCROSE
     Dosage: 300 MG
     Route: 042
     Dates: start: 2016, end: 2016

REACTIONS (8)
  - Blood pressure increased [Unknown]
  - Chest pain [Unknown]
  - Pain [Unknown]
  - Blood glucose increased [Unknown]
  - Headache [Unknown]
  - Dyspnoea [Unknown]
  - Exposure during pregnancy [Unknown]
  - Myalgia [Unknown]

NARRATIVE: CASE EVENT DATE: 2016
